FAERS Safety Report 8875936 (Version 1)
Quarter: 2012Q4

REPORT INFORMATION
  Report Type: 
  Country: IT (occurrence: IT)
  Receive Date: 20121023
  Receipt Date: 20121023
  Transmission Date: 20130627
  Serious: Yes (Hospitalization)
  Sender: FDA-Public Use
  Company Number: IT-GLAXOSMITHKLINE-B0838760A

PATIENT
  Age: 77 None
  Sex: Male

DRUGS (2)
  1. CLOBETASOL [Suspect]
     Indication: PSORIASIS
     Dosage: 2G Alternate days
     Route: 061
     Dates: start: 19920101, end: 20120401
  2. DIPROSONE [Suspect]
     Indication: PSORIASIS
     Dosage: 2G Alternate days
     Route: 061
     Dates: start: 19920101, end: 20120401

REACTIONS (15)
  - Cushing^s syndrome [Not Recovered/Not Resolved]
  - Adrenal insufficiency [Not Recovered/Not Resolved]
  - Diabetes mellitus [Not Recovered/Not Resolved]
  - Hyperadrenocorticism [Unknown]
  - Cerebral ischaemia [Unknown]
  - Enteritis infectious [Unknown]
  - Depression [Not Recovered/Not Resolved]
  - Skin atrophy [Unknown]
  - Atrophy [Unknown]
  - Contusion [Unknown]
  - Cushingoid [Unknown]
  - Kyphosis [Unknown]
  - Hypertension [Unknown]
  - Diarrhoea [Unknown]
  - Whipple^s disease [None]
